FAERS Safety Report 6450881-5 (Version None)
Quarter: 2009Q4

REPORT INFORMATION
  Report Type: 
  Country: None (occurrence: None)
  Receive Date: 20091123
  Receipt Date: 20091110
  Transmission Date: 20100525
  Serious: Yes (Other)
  Sender: FDA-Public Use
  Company Number: CA-PFIZER INC-2009276263

PATIENT
  Age: 74 Year
  Sex: Male
  Weight: 73.016 kg

DRUGS (4)
  1. LIPITOR [Suspect]
     Indication: BLOOD CHOLESTEROL
     Dosage: 10 MG, 1X/DAY
     Dates: start: 20090721, end: 20090901
  2. DILTIAZEM HCL [Interacting]
  3. HYDROCHLOROTHIAZIDE [Concomitant]
  4. ZOPICLONE [Concomitant]
     Indication: SLEEP DISORDER
     Dosage: 7.5 MG, UNK

REACTIONS (7)
  - CONSTIPATION [None]
  - DRUG INTERACTION [None]
  - FATIGUE [None]
  - FLATULENCE [None]
  - HAEMORRHOIDAL HAEMORRHAGE [None]
  - HEADACHE [None]
  - MYALGIA [None]
